FAERS Safety Report 10566605 (Version 1)
Quarter: 2014Q4

REPORT INFORMATION
  Report Type: Spontaneous
  Country: UA (occurrence: UA)
  Receive Date: 20141105
  Receipt Date: 20141105
  Transmission Date: 20150529
  Serious: Yes (Death, Other)
  Sender: FDA-Public Use
  Company Number: UA-PFIZER INC-2014301622

PATIENT
  Sex: Female

DRUGS (1)
  1. LYRICA [Suspect]
     Active Substance: PREGABALIN
     Indication: NEURALGIA
     Dosage: 150  UNK
     Route: 048
     Dates: start: 201309

REACTIONS (1)
  - Death [Fatal]

NARRATIVE: CASE EVENT DATE: 20131007
